FAERS Safety Report 15856949 (Version 1)
Quarter: 2019Q1

REPORT INFORMATION
  Report Type: Spontaneous
  Country: US (occurrence: US)
  Receive Date: 20190122
  Receipt Date: 20190122
  Transmission Date: 20190417
  Serious: Yes (Other)
  Sender: FDA-Public Use
  Company Number: None

PATIENT
  Age: 40 Year
  Sex: Female

DRUGS (1)
  1. APLISOL [Suspect]
     Active Substance: TUBERCULIN PURIFIED PROTEIN DERIVATIVE
     Indication: MYCOBACTERIUM TUBERCULOSIS COMPLEX TEST
     Dosage: ?          OTHER FREQUENCY:ANNUAL TB SKIN TES;?
     Route: 023
     Dates: start: 20190122, end: 20190122

REACTIONS (6)
  - Injection site pruritus [None]
  - Pruritus [None]
  - Injection site erythema [None]
  - Hyperhidrosis [None]
  - Feeling hot [None]
  - Erythema [None]

NARRATIVE: CASE EVENT DATE: 20190122
